FAERS Safety Report 5277131-X (Version None)
Quarter: 2007Q1

REPORT INFORMATION
  Report Type: 
  Country: None (occurrence: None)
  Receive Date: 20070327
  Receipt Date: 20070315
  Transmission Date: 20070707
  Serious: Yes (Death, Life-Threatening)
  Sender: FDA-Public Use
  Company Number: HQWYE054824MAR04

PATIENT
  Sex: Male
  Weight: 84.5 kg

DRUGS (3)
  1. GEMTUZUMAB OZOGAMICIN [Suspect]
     Indication: ACUTE MYELOID LEUKAEMIA
     Route: 042
     Dates: start: 20040309, end: 20040309
  2. MERONEM [Concomitant]
     Dosage: UNKNOWN DOSE
     Route: 065
     Dates: start: 20040303
  3. TARGOCID [Concomitant]
     Dosage: UNKNOWN DOSE
     Route: 065
     Dates: start: 20040302

REACTIONS (5)
  - ACUTE RESPIRATORY DISTRESS SYNDROME [None]
  - CONDITION AGGRAVATED [None]
  - DISSEMINATED INTRAVASCULAR COAGULATION [None]
  - HEPATOCELLULAR DAMAGE [None]
  - MULTI-ORGAN FAILURE [None]
